FAERS Safety Report 9875938 (Version 1)
Quarter: 2014Q1

REPORT INFORMATION
  Report Type: Spontaneous
  Country: US (occurrence: None)
  Receive Date: 20140205
  Receipt Date: 20140205
  Transmission Date: 20141002
  Serious: Yes (Other)
  Sender: FDA-Public Use
  Company Number: None

PATIENT
  Age: 16 Year
  Sex: 0
  Weight: 49.9 kg

DRUGS (1)
  1. DOXYCYCLINE [Suspect]
     Indication: ACNE
     Dosage: ONE PILL  TID  ORAL
     Route: 048
     Dates: start: 20140128, end: 20140131

REACTIONS (2)
  - Oesophageal ulcer [None]
  - Product label issue [None]
